FAERS Safety Report 5420966-0 (Version None)
Quarter: 2007Q3

REPORT INFORMATION
  Report Type: 
  Country: None (occurrence: None)
  Receive Date: 20070821
  Receipt Date: 20070810
  Transmission Date: 20080115
  Serious: Yes (Hospitalization, Disabling)
  Sender: FDA-Public Use
  Company Number: CA-MERCK-0708CAN00068

PATIENT
  Age: 66 Year
  Sex: Female
  Weight: 91 kg

DRUGS (16)
  1. VIOXX [Suspect]
     Indication: ARTHRITIS
     Route: 048
     Dates: start: 20000518, end: 20010604
  2. VIOXX [Suspect]
     Route: 048
     Dates: start: 20000518, end: 20010604
  3. ZOCOR [Suspect]
     Indication: BLOOD CHOLESTEROL INCREASED
     Route: 048
     Dates: end: 20021008
  4. ZOCOR [Suspect]
     Route: 048
     Dates: end: 20041212
  5. FOSINOPRIL SODIUM [Concomitant]
     Indication: CARDIAC DISORDER
     Route: 065
  6. CARVEDILOL [Concomitant]
     Indication: HYPERTENSION
     Route: 065
  7. RAMIPRIL [Concomitant]
     Indication: CARDIAC DISORDER
     Route: 065
  8. DICLOFENAC SODIUM AND MISOPROSTOL [Concomitant]
     Indication: ARTHRALGIA
     Route: 065
  9. [THERAPY UNSPECIFIED] [Concomitant]
     Indication: NERVOUSNESS
     Route: 065
  10. HYDROCORTISONE [Concomitant]
     Route: 065
  11. FAMCICLOVIR [Concomitant]
     Route: 065
  12. [THERAPY UNSPECIFIED] [Concomitant]
     Route: 065
  13. GENTAMICIN [Concomitant]
     Route: 047
  14. LEVOFLOXACIN [Concomitant]
     Route: 065
  15. CIPROFLOXACIN HYDROCHLORIDE [Concomitant]
     Route: 065
  16. RANITIDINE [Concomitant]
     Route: 065

REACTIONS (10)
  - ATRIAL FIBRILLATION [None]
  - BLOOD CULTURE POSITIVE [None]
  - BRADYCARDIA [None]
  - CARDIAC DISORDER [None]
  - CORONARY ARTERY DISEASE [None]
  - DEPRESSION [None]
  - DRUG HYPERSENSITIVITY [None]
  - EMOTIONAL DISTRESS [None]
  - HYPERTENSION [None]
  - URINARY TRACT INFECTION [None]
